FAERS Safety Report 6790259-8 (Version None)
Quarter: 2010Q2

REPORT INFORMATION
  Report Type: 
  Country: None (occurrence: None)
  Receive Date: 20100624
  Receipt Date: 20100614
  Transmission Date: 20101027
  Serious: Yes (Hospitalization)
  Sender: FDA-Public Use
  Company Number: JP-BRISTOL-MYERS SQUIBB COMPANY-15148125

PATIENT
  Age: 84 Year
  Sex: Female

DRUGS (9)
  1. HEPARIN SODIUM [Suspect]
     Dosage: DRUG TAKEN IN PERIPHERAL ROUTE
  2. PRAVASTATIN SODIUM [Suspect]
     Indication: HYPERTENSION
     Dates: start: 20080701
  3. PRAVASTATIN SODIUM [Suspect]
     Indication: HYPERLIPIDAEMIA
     Dates: start: 20080701
  4. AMLODIPINE [Suspect]
     Indication: HYPERTENSION
     Dates: start: 20080701
  5. AMLODIPINE [Suspect]
     Indication: HYPERLIPIDAEMIA
     Dates: start: 20080701
  6. CANDESARTAN CILEXETIL [Suspect]
     Indication: HYPERTENSION
     Dates: start: 20080701
  7. CANDESARTAN CILEXETIL [Suspect]
     Indication: HYPERLIPIDAEMIA
     Dates: start: 20080701
  8. ROXATIDINE ACETATE HCL [Suspect]
     Indication: HYPERTENSION
     Dates: start: 20080701
  9. ROXATIDINE ACETATE HCL [Suspect]
     Indication: HYPERLIPIDAEMIA
     Dates: start: 20080701

REACTIONS (3)
  - DISSEMINATED INTRAVASCULAR COAGULATION [None]
  - HEPARIN-INDUCED THROMBOCYTOPENIA [None]
  - PNEUMONIA [None]
